FAERS Safety Report 21948296 (Version 3)
Quarter: 2023Q2

REPORT INFORMATION
  Report Type: Report from Study
  Country: US (occurrence: US)
  Receive Date: 20230203
  Receipt Date: 20230526
  Transmission Date: 20230722
  Serious: Yes (Other)
  Sender: FDA-Public Use
  Company Number: US-ABBVIE-4293729

PATIENT
  Sex: Male

DRUGS (1)
  1. HUMIRA [Suspect]
     Active Substance: ADALIMUMAB
     Indication: Ankylosing spondylitis
     Dosage: FORM STRENGTH: 40MG ?CITRATE FREE
     Route: 058

REACTIONS (13)
  - Knee operation [Recovered/Resolved]
  - Injection site erythema [Unknown]
  - Joint swelling [Recovering/Resolving]
  - Injection site reaction [Recovered/Resolved]
  - Musculoskeletal stiffness [Recovering/Resolving]
  - Arthralgia [Unknown]
  - Meniscus operation [Unknown]
  - Joint swelling [Recovering/Resolving]
  - Musculoskeletal discomfort [Unknown]
  - Injection site reaction [Recovering/Resolving]
  - Back pain [Recovering/Resolving]
  - Joint noise [Recovering/Resolving]
  - Injection site induration [Unknown]
